FAERS Safety Report 9734805 (Version 2)
Quarter: 2014Q2

REPORT INFORMATION
  Report Type: Report from Study
  Country: CA (occurrence: CA)
  Receive Date: 20131206
  Receipt Date: 20140410
  Transmission Date: 20141212
  Serious: Yes (Hospitalization)
  Sender: FDA-Public Use
  Company Number: CA-JNJFOC-20131118555

PATIENT
  Age: 32 Year
  Sex: Female
  Weight: 75.2 kg

DRUGS (4)
  1. REMICADE [Suspect]
     Indication: CROHN^S DISEASE
     Route: 042
     Dates: start: 20120518
  2. CITALOPRAM [Concomitant]
     Route: 065
  3. QUETIAPINE [Concomitant]
     Route: 065
  4. LORAZEPAM [Concomitant]
     Route: 065

REACTIONS (1)
  - Depression [Not Recovered/Not Resolved]
